FAERS Safety Report 14134175 (Version 1)
Quarter: 2017Q4

REPORT INFORMATION
  Report Type: Spontaneous
  Country: US (occurrence: US)
  Receive Date: 20171026
  Receipt Date: 20171026
  Transmission Date: 20180321
  Serious: No
  Sender: FDA-Public Use
  Company Number: US-TESARO, INC.-US-2017TSO01833

PATIENT

DRUGS (1)
  1. ZEJULA [Suspect]
     Active Substance: NIRAPARIB
     Indication: PRODUCT USED FOR UNKNOWN INDICATION
     Dosage: 300 MG, QD
     Route: 065

REACTIONS (9)
  - Sleep disorder [Unknown]
  - Fatigue [None]
  - Nausea [Unknown]
  - Asthenia [None]
  - Dry mouth [Unknown]
  - Cough [Unknown]
  - Oedema peripheral [Unknown]
  - Abdominal distension [Unknown]
  - Dysgeusia [Unknown]
